FAERS Safety Report 6468571-1 (Version None)
Quarter: 2009Q4

REPORT INFORMATION
  Report Type: 
  Country: None (occurrence: None)
  Receive Date: 20091202
  Receipt Date: 20091202
  Transmission Date: 20100525
  Serious: No
  Sender: FDA-Public Use
  Company Number: None

PATIENT
  Age: 7 Year
  Sex: Male
  Weight: 36.2878 kg

DRUGS (2)
  1. DULCOLAX [Suspect]
     Indication: CONSTIPATION
     Dosage: 5MG Q6HRS. PRN PO
     Route: 048
  2. ZEBETA [Suspect]
     Indication: DRUG DISPENSING ERROR
     Dosage: 5MG Q6HRS PRN PO
     Route: 048
     Dates: start: 20091125, end: 20091126

REACTIONS (2)
  - DRUG DISPENSING ERROR [None]
  - WRONG DRUG ADMINISTERED [None]
